FAERS Safety Report 17297682 (Version 1)
Quarter: 2020Q1

REPORT INFORMATION
  Report Type: Spontaneous
  Country: CA (occurrence: CA)
  Receive Date: 20200122
  Receipt Date: 20200122
  Transmission Date: 20200409
  Serious: Yes (Hospitalization)
  Sender: FDA-Public Use
  Company Number: CA-TEVA-2020-CA-1172420

PATIENT
  Age: 89 Year
  Sex: Male

DRUGS (4)
  1. AMOXICILLIN/CLAVULANATE [Suspect]
     Active Substance: AMOXICILLIN\CLAVULANATE POTASSIUM
     Indication: PNEUMONIA
     Dosage: 1750 MILLIGRAM DAILY;
     Route: 048
  2. AZITHROMYCIN ANHYDROUS. [Concomitant]
     Active Substance: AZITHROMYCIN ANHYDROUS
  3. NITRO-DUR [Concomitant]
     Active Substance: NITROGLYCERIN
  4. CANDESARTAN. [Concomitant]
     Active Substance: CANDESARTAN

REACTIONS (3)
  - Eosinophil count increased [Recovering/Resolving]
  - General physical health deterioration [Recovering/Resolving]
  - Blood alkaline phosphatase increased [Recovering/Resolving]
